FAERS Safety Report 8018595-8 (Version None)
Quarter: 2012Q1

REPORT INFORMATION
  Report Type: 
  Country: None (occurrence: None)
  Receive Date: 20120103
  Receipt Date: 20111228
  Transmission Date: 20120608
  Serious: Yes (Other)
  Sender: FDA-Public Use
  Company Number: CN-PFIZER INC-2011287181

PATIENT
  Age: 14 Year
  Sex: Male

DRUGS (2)
  1. ACETAMINOPHEN [Concomitant]
     Dosage: UNK
     Route: 048
     Dates: start: 20061001
  2. CLINDAMYCIN [Suspect]
     Dosage: UNK
     Route: 041
     Dates: start: 20061001

REACTIONS (2)
  - HAEMATURIA [None]
  - ABDOMINAL PAIN [None]
